FAERS Safety Report 15165217 (Version 3)
Quarter: 2018Q4

REPORT INFORMATION
  Report Type: Spontaneous
  Country: DE (occurrence: DE)
  Receive Date: 20180719
  Receipt Date: 20181130
  Transmission Date: 20190204
  Serious: Yes (Hospitalization, Other)
  Sender: FDA-Public Use
  Company Number: DE-SA-2018SA190608

PATIENT
  Age: 38 Year
  Sex: Female

DRUGS (2)
  1. LEMTRADA [Suspect]
     Active Substance: ALEMTUZUMAB
     Dosage: 12 MG
     Route: 041
     Dates: start: 20170913, end: 20170915
  2. LEMTRADA [Suspect]
     Active Substance: ALEMTUZUMAB
     Dosage: 12 MG
     Route: 041
     Dates: start: 20160909, end: 20160913

REACTIONS (17)
  - Necrosis [Unknown]
  - Feeding disorder [Recovered/Resolved]
  - Musculoskeletal disorder [Unknown]
  - Antinuclear antibody [Unknown]
  - Tendon rupture [Unknown]
  - Rash generalised [Recovered/Resolved]
  - Rash [Recovered/Resolved]
  - Fall [Unknown]
  - Muscular weakness [Unknown]
  - Pseudarthrosis [Recovered/Resolved]
  - Livedo reticularis [Not Recovered/Not Resolved]
  - Pharyngitis [Recovered/Resolved]
  - Stress [Unknown]
  - Gait disturbance [Unknown]
  - Musculoskeletal chest pain [Recovered/Resolved]
  - Back pain [Unknown]
  - Scapula fracture [Unknown]

NARRATIVE: CASE EVENT DATE: 2017
